FAERS Safety Report 5618839-3 (Version None)
Quarter: 2008Q1

REPORT INFORMATION
  Report Type: 
  Country: None (occurrence: None)
  Receive Date: 20080207
  Receipt Date: 20080204
  Transmission Date: 20080703
  Serious: Yes (Hospitalization)
  Sender: FDA-Public Use
  Company Number: FR-ELI_LILLY_AND_COMPANY-FR200802000348

PATIENT
  Sex: Male

DRUGS (4)
  1. CIALIS [Suspect]
     Indication: EJACULATION DISORDER
     Dosage: 20 MG, UNK
     Route: 048
     Dates: start: 20071213, end: 20071213
  2. CAPTEA [Concomitant]
  3. FLECAINIDE ACETATE [Concomitant]
  4. CIPROFIBRATE [Concomitant]

REACTIONS (2)
  - CEREBRAL HAEMATOMA [None]
  - CEREBROVASCULAR ACCIDENT [None]
